FAERS Safety Report 21741727 (Version 1)
Quarter: 2022Q4

REPORT INFORMATION
  Report Type: Spontaneous
  Country: MY (occurrence: MY)
  Receive Date: 20221216
  Receipt Date: 20221216
  Transmission Date: 20230113
  Serious: Yes (Other)
  Sender: FDA-Public Use
  Company Number: MY-PFIZER INC-202201371232

PATIENT
  Age: 61 Year
  Sex: Female

DRUGS (1)
  1. SULFASALAZINE [Suspect]
     Active Substance: SULFASALAZINE
     Indication: Rheumatoid arthritis
     Dosage: 500 MG, 3X/DAY
     Route: 048

REACTIONS (3)
  - Swelling face [Recovering/Resolving]
  - Eye swelling [Recovering/Resolving]
  - Lip swelling [Recovering/Resolving]
